FAERS Safety Report 4837349-4 (Version None)
Quarter: 2005Q4

REPORT INFORMATION
  Report Type: 
  Country: None (occurrence: None)
  Receive Date: 20051128
  Receipt Date: 20051115
  Transmission Date: 20060501
  Serious: Yes (Hospitalization)
  Sender: FDA-Public Use
  Company Number: US-JNJFOC-20050803461

PATIENT
  Sex: Female
  Weight: 72.57 kg

DRUGS (14)
  1. REMICADE [Suspect]
     Indication: RHEUMATOID ARTHRITIS
     Route: 042
  2. METHOTREXATE [Concomitant]
     Indication: RHEUMATOID ARTHRITIS
     Route: 048
  3. PREDNISONE [Concomitant]
     Indication: RHEUMATOID ARTHRITIS
     Route: 048
  4. NSAIDS [Concomitant]
  5. ULTRAM [Concomitant]
     Dosage: AS NECESSARY
  6. ASPIRIN [Concomitant]
     Dosage: AS NEEDED
  7. TARKA [Concomitant]
  8. FOSAMAX [Concomitant]
  9. ZOCOR [Concomitant]
     Dosage: EVERY H.S.
  10. XANAX [Concomitant]
     Indication: ANXIETY
     Dosage: 2 TO 3 TIMES A DAY AS NEEDED
  11. FLUOXETINE [Concomitant]
  12. ALLEGRA [Concomitant]
  13. NASONEX [Concomitant]
     Dosage: PRN
  14. TUMS [Concomitant]
     Dosage: AS NEEDED

REACTIONS (13)
  - ANAEMIA [None]
  - ASTHENIA [None]
  - CARDIAC FAILURE CONGESTIVE [None]
  - DECREASED APPETITE [None]
  - GENERAL PHYSICAL HEALTH DETERIORATION [None]
  - HAEMORRHAGE [None]
  - HYPOKALAEMIA [None]
  - HYPOPHOSPHATAEMIA [None]
  - INAPPROPRIATE ANTIDIURETIC HORMONE SECRETION [None]
  - PNEUMONIA [None]
  - PSYCHOTIC DISORDER [None]
  - RASH [None]
  - TRICUSPID VALVE INCOMPETENCE [None]
